FAERS Safety Report 24788466 (Version 3)
Quarter: 2025Q4

REPORT INFORMATION
  Report Type: Spontaneous
  Country: US (occurrence: US)
  Receive Date: 20241230
  Receipt Date: 20251106
  Transmission Date: 20260118
  Serious: Yes (Hospitalization)
  Sender: SANOFI AVENTIS
  Company Number: US-SA-2024SA381604

PATIENT
  Age: 61 Year
  Sex: Female

DRUGS (2)
  1. DUPIXENT [Suspect]
     Active Substance: DUPILUMAB
     Indication: Dermatitis allergic
     Dosage: 300 MG, QOW
     Route: 058
  2. DUPIXENT [Suspect]
     Active Substance: DUPILUMAB
     Indication: Transient acantholytic dermatosis

REACTIONS (5)
  - Bronchitis [Unknown]
  - Rash pruritic [Unknown]
  - Rash papular [Unknown]
  - Pruritus [Unknown]
  - Product use in unapproved indication [Unknown]
